FAERS Safety Report 14656275 (Version 2)
Quarter: 2018Q3

REPORT INFORMATION
  Report Type: Report from Study
  Country: DE (occurrence: DE)
  Receive Date: 20180319
  Receipt Date: 20180917
  Transmission Date: 20181010
  Serious: Yes (Death, Hospitalization, Other)
  Sender: FDA-Public Use
  Company Number: DE-PFIZER INC-2018108688

PATIENT
  Age: 52 Year
  Sex: Female
  Weight: 57 kg

DRUGS (27)
  1. FLUOROURACIL. [Suspect]
     Active Substance: FLUOROURACIL
     Dosage: 3120 MG, UNK
     Route: 041
     Dates: start: 20131119, end: 20131121
  2. AVASTIN [Suspect]
     Active Substance: BEVACIZUMAB
     Dosage: 285 MG, UNK
     Route: 042
     Dates: start: 20131022
  3. AVASTIN [Suspect]
     Active Substance: BEVACIZUMAB
     Dosage: 285 MG, UNK
     Route: 042
     Dates: start: 20140103
  4. BISOPROLOL [Concomitant]
     Active Substance: BISOPROLOL
     Indication: HYPERTENSION
     Dosage: 7.5 MG, UNK
     Route: 048
     Dates: start: 20131203
  5. AMLODIPINE [Concomitant]
     Active Substance: AMLODIPINE BESYLATE
     Indication: HYPERTENSION
     Dosage: 2.5 MG, UNK
     Route: 048
     Dates: start: 20131022
  6. FLUOROURACIL. [Suspect]
     Active Substance: FLUOROURACIL
     Indication: RECTAL CANCER METASTATIC
     Dosage: 3120 MG, UNK
     Route: 041
     Dates: start: 20130924, end: 20130926
  7. FLUOROURACIL. [Suspect]
     Active Substance: FLUOROURACIL
     Dosage: 600 MG, UNK
     Route: 040
     Dates: start: 20130924, end: 20130924
  8. FLUOROURACIL. [Suspect]
     Active Substance: FLUOROURACIL
     Dosage: 3120 MG, UNK
     Route: 041
     Dates: start: 20131105, end: 20131107
  9. OXALIPLATIN. [Suspect]
     Active Substance: OXALIPLATIN
     Dosage: 160 MG, UNK
     Route: 042
     Dates: start: 20131119, end: 20131119
  10. HALOPERIDOL. [Concomitant]
     Active Substance: HALOPERIDOL
     Indication: DEPRESSION
  11. FLUOROURACIL. [Suspect]
     Active Substance: FLUOROURACIL
     Dosage: 3120 MG, UNK
     Route: 041
     Dates: start: 20131008, end: 20131010
  12. OXALIPLATIN. [Suspect]
     Active Substance: OXALIPLATIN
     Indication: RECTAL CANCER METASTATIC
     Dosage: 160 MG, UNK
     Route: 042
     Dates: start: 20130103, end: 20140103
  13. OXALIPLATIN. [Suspect]
     Active Substance: OXALIPLATIN
     Dosage: 160 MG, UNK
     Route: 042
     Dates: start: 20130924, end: 20130924
  14. HALOPERIDOL. [Concomitant]
     Active Substance: HALOPERIDOL
     Indication: ANXIETY
     Dosage: 35 DF, UNK
     Route: 048
     Dates: start: 20131008
  15. SODIUM CHLORIDE. [Concomitant]
     Active Substance: SODIUM CHLORIDE
     Dosage: 250 ML, UNK
     Dates: start: 20130924
  16. FLUOROURACIL. [Suspect]
     Active Substance: FLUOROURACIL
     Dosage: 3120 MG, UNK
     Route: 041
     Dates: start: 20131022, end: 20131024
  17. FLUOROURACIL. [Suspect]
     Active Substance: FLUOROURACIL
     Dosage: UNK
  18. OXALIPLATIN. [Suspect]
     Active Substance: OXALIPLATIN
     Dosage: 160 MG, UNK
     Route: 042
     Dates: start: 20131008, end: 20131008
  19. OXALIPLATIN. [Suspect]
     Active Substance: OXALIPLATIN
     Dosage: 160 MG, UNK
     Route: 042
     Dates: start: 20131022, end: 20131022
  20. OXALIPLATIN. [Suspect]
     Active Substance: OXALIPLATIN
     Dosage: 160 MG, UNK
     Route: 042
     Dates: start: 20131105, end: 20131105
  21. AVASTIN [Suspect]
     Active Substance: BEVACIZUMAB
     Indication: RECTAL CANCER METASTATIC
     Dosage: 5 MG/KG, EVERY 2 WEEKS
     Route: 042
     Dates: start: 20130924
  22. DEXAMETHASONE. [Concomitant]
     Active Substance: DEXAMETHASONE
     Dosage: 4 MG, UNK
     Route: 042
     Dates: start: 20130925
  23. MCP [Concomitant]
     Active Substance: METOCLOPRAMIDE HYDROCHLORIDE
     Indication: NAUSEA
     Dosage: 35 GTT, UNK
     Route: 048
     Dates: start: 20130901
  24. MCP [Concomitant]
     Active Substance: METOCLOPRAMIDE HYDROCHLORIDE
     Indication: VOMITING
  25. FLUOROURACIL. [Suspect]
     Active Substance: FLUOROURACIL
     Dosage: 3120 MG, UNK
     Route: 041
     Dates: start: 20140103, end: 20140103
  26. FLUOROURACIL. [Suspect]
     Active Substance: FLUOROURACIL
     Dosage: 3120 MG, UNK
     Route: 041
     Dates: start: 20131203, end: 20131205
  27. OXALIPLATIN. [Suspect]
     Active Substance: OXALIPLATIN
     Dosage: 160 MG, UNK
     Route: 042
     Dates: start: 20131203, end: 20131203

REACTIONS (8)
  - Multiple organ dysfunction syndrome [Fatal]
  - Nausea [Recovered/Resolved]
  - Urinary retention [Recovered/Resolved]
  - Agitation [Recovered/Resolved]
  - Restlessness [Recovered/Resolved]
  - Diarrhoea [Recovered/Resolved]
  - Tachycardia [Recovered/Resolved]
  - Vomiting [Recovered/Resolved]

NARRATIVE: CASE EVENT DATE: 20130925
